FAERS Safety Report 6037304-5 (Version None)
Quarter: 2009Q1

REPORT INFORMATION
  Report Type: 
  Country: None (occurrence: None)
  Receive Date: 20090114
  Receipt Date: 20090108
  Transmission Date: 20090719
  Serious: Yes (Hospitalization)
  Sender: FDA-Public Use
  Company Number: US-SANOFI-SYNTHELABO-F01200801707

PATIENT
  Sex: Male
  Weight: 72.6 kg

DRUGS (15)
  1. GREEN TEA EXTRACT [Concomitant]
  2. GRAPE SEED EXTRACT [Concomitant]
  3. TOPROL-XL [Concomitant]
  4. LOPRESSOR [Concomitant]
  5. ZOFRAN [Concomitant]
  6. COMPAZINE [Concomitant]
  7. KYTRIL [Concomitant]
  8. IMODIUM [Concomitant]
  9. TYLENOL (CAPLET) [Concomitant]
  10. VITAMIN E [Concomitant]
  11. MULTI-VITAMIN [Concomitant]
  12. NEXIUM [Concomitant]
     Route: 048
  13. BEVACIZUMAB [Suspect]
     Route: 042
     Dates: start: 20081029, end: 20081029
  14. DOCETAXEL [Suspect]
     Route: 042
     Dates: start: 20081029, end: 20081029
  15. OXALIPLATIN [Suspect]
     Indication: LUNG NEOPLASM MALIGNANT
     Route: 042
     Dates: start: 20081029, end: 20081029

REACTIONS (2)
  - ATRIAL FIBRILLATION [None]
  - DIARRHOEA [None]
